FAERS Safety Report 6131429-1 (Version None)
Quarter: 2009Q1

REPORT INFORMATION
  Report Type: 
  Country: None (occurrence: None)
  Receive Date: 20090325
  Receipt Date: 20080617
  Transmission Date: 20090719
  Serious: No
  Sender: FDA-Public Use
  Company Number: US-BRISTOL-MYERS SQUIBB COMPANY-14231922

PATIENT

DRUGS (1)
  1. ERBITUX [Suspect]

REACTIONS (3)
  - FAECES DISCOLOURED [None]
  - HEADACHE [None]
  - NAUSEA [None]
